FAERS Safety Report 12186445 (Version 4)
Quarter: 2016Q4

REPORT INFORMATION
  Report Type: Report from Study
  Country: CA (occurrence: CA)
  Receive Date: 20160317
  Receipt Date: 20161110
  Transmission Date: 20170207
  Serious: Yes (Other)
  Sender: FDA-Public Use
  Company Number: CA-AMGEN-CANSL2016032700

PATIENT
  Age: 84 Year
  Sex: Female

DRUGS (1)
  1. PROLIA [Suspect]
     Active Substance: DENOSUMAB
     Indication: OSTEOPOROSIS
     Dosage: UNK
     Route: 065
     Dates: start: 20130219

REACTIONS (9)
  - Jaw fracture [Unknown]
  - Exostosis of jaw [Unknown]
  - Unevaluable event [Unknown]
  - Device issue [Unknown]
  - Tooth disorder [Unknown]
  - Hypergammaglobulinaemia benign monoclonal [Unknown]
  - Muscle spasms [Unknown]
  - Coeliac disease [Unknown]
  - Neuralgia [Unknown]

NARRATIVE: CASE EVENT DATE: 201512
